FAERS Safety Report 8715775 (Version 2)
Quarter: 2016Q2

REPORT INFORMATION
  Report Type: Spontaneous
  Country: CA (occurrence: CA)
  Receive Date: 20120809
  Receipt Date: 20160623
  Transmission Date: 20160815
  Serious: Yes (Life-Threatening, Hospitalization, Other)
  Sender: FDA-Public Use
  Company Number: CA-PFIZER INC-2012190760

PATIENT
  Age: 39 Week
  Sex: Female
  Weight: 2.9 kg

DRUGS (6)
  1. ACETAMINOPHEN. [Suspect]
     Active Substance: ACETAMINOPHEN
     Indication: AFTERBIRTH PAIN
     Dosage: UNK
     Route: 063
  2. IBUPROFEN. [Suspect]
     Active Substance: IBUPROFEN
     Indication: AFTERBIRTH PAIN
     Dosage: UNK
     Route: 063
  3. OXYCODONE [Suspect]
     Active Substance: OXYCODONE
     Dosage: UNKNOWN, EVERY 6 HOURS FOR 2 DAYS
     Route: 063
  4. OXYCODONE [Suspect]
     Active Substance: OXYCODONE
     Indication: AFTERBIRTH PAIN
     Dosage: UNKNOWN, EVERY 4 HOURS FOR 2 DAYS
     Route: 063
  5. ACETAMINOPHEN AND CODEINE [Suspect]
     Active Substance: ACETAMINOPHEN\CODEINE PHOSPHATE
     Indication: PAIN
     Dosage: 1.4 MG/KG/DAY, 3 TIMES A DAY
     Route: 063
  6. ACETAMINOPHEN AND CODEINE [Suspect]
     Active Substance: ACETAMINOPHEN\CODEINE PHOSPHATE
     Indication: COUGH
     Dosage: 2.1 MG/KG, UNK
     Route: 063

REACTIONS (4)
  - Hypersomnia [Unknown]
  - Exposure during breast feeding [Recovering/Resolving]
  - Respiratory arrest [Recovering/Resolving]
  - Lethargy [Unknown]
